FAERS Safety Report 7718577-7 (Version None)
Quarter: 2011Q3

REPORT INFORMATION
  Report Type: 
  Country: None (occurrence: None)
  Receive Date: 20110830
  Receipt Date: 20110816
  Transmission Date: 20111222
  Serious: Yes (Hospitalization)
  Sender: FDA-Public Use
  Company Number: US-ELI_LILLY_AND_COMPANY-US201011004650

PATIENT
  Sex: Female
  Weight: 66.213 kg

DRUGS (4)
  1. FORTEO [Suspect]
     Dosage: 20 UG, QD
  2. TYLENOL PM [Concomitant]
     Indication: PAIN
  3. FORTEO [Suspect]
     Indication: OSTEOPOROSIS
     Dosage: 20 UG, DAILY (1/D)
     Dates: start: 20101020
  4. FORTEO [Suspect]
     Dosage: 20 UG, QD

REACTIONS (7)
  - INSOMNIA [None]
  - VOMITING [None]
  - DIARRHOEA [None]
  - INJECTION SITE ERYTHEMA [None]
  - FEELING COLD [None]
  - AGITATION [None]
  - TOE OPERATION [None]
